FAERS Safety Report 10425309 (Version 2)
Quarter: 2015Q3

REPORT INFORMATION
  Report Type: Spontaneous
  Country: US (occurrence: US)
  Receive Date: 20140902
  Receipt Date: 20150818
  Transmission Date: 20151125
  Serious: No
  Sender: FDA-Public Use
  Company Number: US-GILEAD-2014-0113491

PATIENT
  Age: 79 Year
  Sex: Female

DRUGS (3)
  1. LETAIRIS [Suspect]
     Active Substance: AMBRISENTAN
     Indication: PRODUCT USED FOR UNKNOWN INDICATION
     Dosage: 5 MG, UNK
     Route: 065
     Dates: start: 20140731
  2. REVATIO [Concomitant]
     Active Substance: SILDENAFIL CITRATE
  3. COUMADIN [Concomitant]
     Active Substance: WARFARIN SODIUM

REACTIONS (2)
  - Pain in extremity [Unknown]
  - Oedema peripheral [Unknown]
